FAERS Safety Report 7047404-9 (Version None)
Quarter: 2010Q4

REPORT INFORMATION
  Report Type: 
  Country: None (occurrence: None)
  Receive Date: 20101015
  Receipt Date: 20101007
  Transmission Date: 20110411
  Serious: Yes (Other)
  Sender: FDA-Public Use
  Company Number: NO-JNJFOC-20101002856

PATIENT
  Age: 50 Year
  Sex: Female

DRUGS (4)
  1. HALDOL [Suspect]
     Indication: PRODUCT USED FOR UNKNOWN INDICATION
     Route: 065
  2. HALDOL [Suspect]
     Route: 065
  3. CISORDINOL [Suspect]
     Indication: PRODUCT USED FOR UNKNOWN INDICATION
  4. NOZINAN [Concomitant]

REACTIONS (1)
  - ADDISON'S DISEASE [None]
